FAERS Safety Report 13410941 (Version 3)
Quarter: 2020Q1

REPORT INFORMATION
  Report Type: Spontaneous
  Country: US (occurrence: US)
  Receive Date: 20170406
  Receipt Date: 20200109
  Transmission Date: 20200409
  Serious: No
  Sender: FDA-Public Use
  Company Number: US-JNJFOC-20170302817

PATIENT
  Age: 9 Year
  Sex: Male

DRUGS (10)
  1. RISPERDAL [Suspect]
     Active Substance: RISPERIDONE
     Indication: INTELLECTUAL DISABILITY
     Route: 048
     Dates: start: 20090327, end: 20090710
  2. RISPERDAL [Suspect]
     Active Substance: RISPERIDONE
     Indication: MAJOR DEPRESSION
     Dosage: 1MG, 4 MG
     Route: 048
     Dates: start: 20040916, end: 20080619
  3. RISPERDAL [Suspect]
     Active Substance: RISPERIDONE
     Indication: ATTENTION DEFICIT/HYPERACTIVITY DISORDER
     Dosage: 2MG, 3MG
     Route: 048
     Dates: start: 20090306
  4. RISPERDAL [Suspect]
     Active Substance: RISPERIDONE
     Indication: MAJOR DEPRESSION
     Dosage: 2MG, 3MG
     Route: 048
     Dates: start: 20090402, end: 20150401
  5. RISPERIDONE. [Suspect]
     Active Substance: RISPERIDONE
     Indication: PRODUCT USED FOR UNKNOWN INDICATION
     Route: 048
  6. RISPERDAL [Suspect]
     Active Substance: RISPERIDONE
     Indication: POST-TRAUMATIC STRESS DISORDER
     Dosage: 1MG 2 A DAY, 2,3,4MG AT BEDTIME
     Route: 048
     Dates: start: 20080702, end: 20081104
  7. RISPERDAL [Suspect]
     Active Substance: RISPERIDONE
     Indication: POST-TRAUMATIC STRESS DISORDER
  8. RISPERDAL [Suspect]
     Active Substance: RISPERIDONE
     Indication: INTELLECTUAL DISABILITY
  9. RISPERDAL [Suspect]
     Active Substance: RISPERIDONE
     Indication: ATTENTION DEFICIT/HYPERACTIVITY DISORDER
     Route: 048
     Dates: start: 20081105, end: 20090306
  10. RISPERDAL [Suspect]
     Active Substance: RISPERIDONE
     Route: 048
     Dates: start: 20140814, end: 20150401

REACTIONS (4)
  - Gynaecomastia [Unknown]
  - Emotional distress [Unknown]
  - Off label use [Unknown]
  - Product use in unapproved indication [Unknown]

NARRATIVE: CASE EVENT DATE: 20040916
